FAERS Safety Report 18518418 (Version 2)
Quarter: 2020Q4

REPORT INFORMATION
  Report Type: Spontaneous
  Country: US (occurrence: US)
  Receive Date: 20201118
  Receipt Date: 20201221
  Transmission Date: 20210114
  Serious: Yes (Death, Hospitalization, Other)
  Sender: FDA-Public Use
  Company Number: US-AMNEAL PHARMACEUTICALS-2020-AMRX-03571

PATIENT
  Age: 91 Year
  Sex: Male

DRUGS (1)
  1. RYTARY [Suspect]
     Active Substance: CARBIDOPA\LEVODOPA
     Indication: PARKINSON^S DISEASE
     Dosage: 7 CAPSULES, DAILY (2 CAPS 9AM, 2 CAPS 1PM, 2 CAPS 5PM, 1 CAP 9PM)
     Route: 065
     Dates: start: 201810

REACTIONS (4)
  - Pneumonia [Fatal]
  - Intestinal obstruction [Unknown]
  - Abdominal adhesions [Unknown]
  - Intestinal strangulation [Unknown]

NARRATIVE: CASE EVENT DATE: 20200904
